FAERS Safety Report 13052785 (Version 1)
Quarter: 2016Q4

REPORT INFORMATION
  Report Type: Spontaneous
  Country: BR (occurrence: BR)
  Receive Date: 20161221
  Receipt Date: 20161221
  Transmission Date: 20170207
  Serious: Yes (Other)
  Sender: FDA-Public Use
  Company Number: BR-AMGEN-BRASP2016167045

PATIENT
  Age: 54 Year
  Sex: Female
  Weight: 51 kg

DRUGS (10)
  1. ENBREL [Suspect]
     Active Substance: ETANERCEPT
     Indication: OSTEOARTHRITIS
     Dosage: UNK
     Route: 065
  2. ALPRAZOLAM. [Concomitant]
     Active Substance: ALPRAZOLAM
     Indication: SLEEP DISORDER
     Dosage: UNK UNK, ONCE AT NIGHT
     Route: 048
  3. ALPRAZOLAM. [Concomitant]
     Active Substance: ALPRAZOLAM
     Indication: DISCOMFORT
  4. MESACOL [Concomitant]
     Active Substance: MESALAMINE
     Dosage: UNK, EVERY 8 YEARS
  5. MESACOL [Concomitant]
     Active Substance: MESALAMINE
     Indication: COLITIS ULCERATIVE
     Dosage: 1 DF, DAILY (ONCE IN THE MORNING)
     Route: 048
     Dates: start: 2015
  6. QUETIAPINE. [Concomitant]
     Active Substance: QUETIAPINE
     Indication: SLEEP DISORDER
     Dosage: 100 MG, 1X/DAY
     Route: 048
  7. PANTOPRAZOLE [Concomitant]
     Active Substance: PANTOPRAZOLE SODIUM
     Indication: GASTRITIS
     Dosage: 40 MG (1 TABLET IN FASTING), DOES NOT USE IT EVERY DAY
     Route: 048
     Dates: start: 2015
  8. ENBREL [Suspect]
     Active Substance: ETANERCEPT
     Indication: RHEUMATIC DISORDER
     Dosage: 50 MG, CYCLIC (EVERY 8 DAYS)
     Route: 058
     Dates: start: 201608
  9. ENBREL [Suspect]
     Active Substance: ETANERCEPT
     Indication: ARTHRITIS
     Dosage: 50 MG, CYCLIC (EVERY 8 DAYS)
     Route: 058
     Dates: start: 2016
  10. TAMARINE [Concomitant]
     Indication: GASTROINTESTINAL DISORDER
     Dosage: 10 ML (1 DESERT SPOON), NOT CONTINUOUS USE
     Route: 048
     Dates: start: 201604

REACTIONS (35)
  - Injection site erythema [Unknown]
  - Tremor [Unknown]
  - Dysstasia [Unknown]
  - Dysentery [Unknown]
  - Constipation [Not Recovered/Not Resolved]
  - Hypertension [Unknown]
  - Drug dose omission [Unknown]
  - Paraesthesia [Unknown]
  - Bone formation increased [Unknown]
  - Chest pain [Unknown]
  - Insomnia [Unknown]
  - Asthenia [Unknown]
  - Dyspnoea [Unknown]
  - Back pain [Unknown]
  - Injection site pruritus [Unknown]
  - Feeling abnormal [Unknown]
  - Injection site discolouration [Unknown]
  - Dizziness [Unknown]
  - Intentional product misuse [Unknown]
  - Pyrexia [Unknown]
  - Abdominal pain [Unknown]
  - Pain [Unknown]
  - Depression [Unknown]
  - Joint swelling [Unknown]
  - Weight decreased [Not Recovered/Not Resolved]
  - Gait disturbance [Unknown]
  - Product use issue [Unknown]
  - Hyperhidrosis [Unknown]
  - Pruritus [Unknown]
  - Blood pressure fluctuation [Unknown]
  - Headache [Unknown]
  - Burning sensation [Unknown]
  - Decreased appetite [Unknown]
  - Heart rate irregular [Unknown]
  - Fatigue [Unknown]

NARRATIVE: CASE EVENT DATE: 2016
